FAERS Safety Report 6907973-3 (Version None)
Quarter: 2010Q3

REPORT INFORMATION
  Report Type: 
  Country: None (occurrence: None)
  Receive Date: 20100805
  Receipt Date: 20100729
  Transmission Date: 20110219
  Serious: Yes (Death, Hospitalization, Other)
  Sender: FDA-Public Use
  Company Number: PHEH2006US10893

PATIENT
  Age: 61 Year
  Sex: Female
  Weight: 68.027 kg

DRUGS (61)
  1. ZOMETA [Suspect]
     Indication: METASTASES TO BONE
  2. FOSAMAX [Suspect]
     Route: 048
  3. OXYCONTIN [Suspect]
     Dosage: 40 MG, BID
     Route: 048
  4. AMBIEN [Suspect]
     Dosage: 5 MG, QHS
  5. SINGULAIR [Concomitant]
     Dosage: 10 MG, QD
     Route: 048
  6. BEXTRA [Concomitant]
  7. DIOVAN [Concomitant]
  8. EFFEXOR [Concomitant]
  9. ADVAIR DISKUS 100/50 [Concomitant]
  10. LORTAB [Concomitant]
  11. XANAX [Concomitant]
     Dosage: 0.5 DF, PRN
  12. AROMASIN [Concomitant]
     Dosage: 25 MG, QD
     Route: 048
  13. MOBIC [Concomitant]
     Dosage: 7.5 MG, QD
     Route: 048
  14. FASLODEX [Concomitant]
  15. MELOXICAM [Concomitant]
  16. TAMOXIFEN CITRATE [Concomitant]
     Dosage: UNK
     Dates: start: 20030601, end: 20040601
  17. CARBOPLATIN [Concomitant]
  18. PACLITAXEL [Concomitant]
  19. ZOFRAN [Concomitant]
  20. DEXAMETHASONE [Concomitant]
  21. BENADRYL ^PARKE DAVIS^                  /AUT/ [Concomitant]
  22. RANITIDINE [Concomitant]
  23. HERCEPTIN [Concomitant]
  24. METHADONE HCL [Concomitant]
  25. RITALIN [Concomitant]
  26. OXYCODONE [Concomitant]
  27. DURAGESIC-100 [Concomitant]
  28. OXYFAST [Concomitant]
  29. TORADOL [Concomitant]
  30. ANCEF [Concomitant]
     Dosage: 2G, STAT
     Route: 042
  31. DEMEROL [Concomitant]
  32. ALBUTEROL [Concomitant]
     Dosage: 2 PUFFS QID PRN SOS
  33. ANUSOL HC [Concomitant]
  34. ATIVAN [Concomitant]
     Indication: ANXIETY
     Dosage: 0.25 TO 0.5 MG, PRN
     Route: 048
  35. BENADRYL [Concomitant]
  36. HALDOL [Concomitant]
  37. ATROPINE [Concomitant]
     Dosage: 1%, 2-4 GTTS
     Route: 047
  38. BACLOFEN [Concomitant]
     Dosage: 5MG,
  39. BISACODYL [Concomitant]
  40. COLACE [Concomitant]
  41. DECADRON [Concomitant]
     Dosage: 4 MG,UNK
  42. DILANTIN [Concomitant]
     Dosage: 100MG, TID
     Route: 048
  43. DIOVAN HCT [Concomitant]
     Dosage: 25 MG, HALF TABLET PER DAY
  44. DITROPAN [Concomitant]
     Dosage: 5MG,
  45. LASIX [Concomitant]
     Dosage: 20MG,
  46. LONOX [Concomitant]
     Dosage: 2.5
  47. PRILOSEC [Concomitant]
     Dosage: 20 MG,
     Route: 048
  48. SENNA [Concomitant]
  49. TRAZODONE [Concomitant]
  50. ACETAMINOPHEN [Concomitant]
     Dosage: 650MG,
  51. DIPHENOXYLATE HCL AND ATROPINE SULFATE [Concomitant]
  52. MAGNESIUM HYDROXIDE TAB [Concomitant]
  53. PYRIDOXINE HCL [Concomitant]
  54. VENLAFAXINE [Concomitant]
  55. DUONEB [Concomitant]
  56. HEPARIN LOCK FLUSH [Concomitant]
  57. ACETAMINOPHEN [Concomitant]
     Dosage: 500MG,
  58. CITALOPRAM [Concomitant]
  59. DIPHENHYDRAMINE [Concomitant]
  60. FUROSEMIDE [Concomitant]
     Dosage: 20MG,
  61. ROXANOL [Concomitant]

REACTIONS (85)
  - ADENOCARCINOMA [None]
  - ADENOMA BENIGN [None]
  - ADNEXA UTERI CYST [None]
  - ALLERGIC SINUSITIS [None]
  - ANXIETY [None]
  - AORTIC ARTERIOSCLEROSIS [None]
  - AORTIC VALVE SCLEROSIS [None]
  - ARTHRALGIA [None]
  - ARTHRITIS [None]
  - ASTHENIA [None]
  - ASTHMA [None]
  - ATELECTASIS [None]
  - BACK PAIN [None]
  - BREAST CALCIFICATIONS [None]
  - BREAST CANCER METASTATIC [None]
  - BREAST CYST [None]
  - BREAST MASS [None]
  - BRONCHITIS [None]
  - BRUXISM [None]
  - CARDIAC DISORDER [None]
  - CENTRAL VENOUS CATHETERISATION [None]
  - CEREBRAL ARTERIOSCLEROSIS [None]
  - CHRONIC OBSTRUCTIVE PULMONARY DISEASE [None]
  - COUGH [None]
  - CRYING [None]
  - DEATH [None]
  - DIARRHOEA [None]
  - DIZZINESS [None]
  - DYSPNOEA [None]
  - EAR PAIN [None]
  - EMPHYSEMA [None]
  - ENTEROCOLITIS HAEMORRHAGIC [None]
  - FATIGUE [None]
  - FIBROADENOMA OF BREAST [None]
  - HAEMANGIOMA [None]
  - HAEMATOCRIT DECREASED [None]
  - HAEMOGLOBIN DECREASED [None]
  - HEADACHE [None]
  - HEPATIC CYST [None]
  - HEPATIC MASS [None]
  - HOT FLUSH [None]
  - HYPERHIDROSIS [None]
  - HYPERSENSITIVITY [None]
  - HYPERTENSION [None]
  - INJURY [None]
  - INTERVERTEBRAL DISC DEGENERATION [None]
  - INTERVERTEBRAL DISC PROTRUSION [None]
  - INTRACRANIAL ANEURYSM [None]
  - JOINT SWELLING [None]
  - LUNG WEDGE RESECTION [None]
  - LYMPHOCYTE COUNT DECREASED [None]
  - MALNUTRITION [None]
  - MENTAL STATUS CHANGES [None]
  - METASTASES TO BONE [None]
  - MITRAL VALVE CALCIFICATION [None]
  - MITRAL VALVE INCOMPETENCE [None]
  - MONOCYTE COUNT INCREASED [None]
  - MOOD SWINGS [None]
  - MUSCULOSKELETAL STIFFNESS [None]
  - MYELOMALACIA [None]
  - NAUSEA [None]
  - NEUTROPHIL COUNT INCREASED [None]
  - NON-SMALL CELL LUNG CANCER METASTATIC [None]
  - NON-SMALL CELL LUNG CANCER RECURRENT [None]
  - OSTEONECROSIS OF JAW [None]
  - OSTEOPOROSIS [None]
  - OSTEOSCLEROSIS [None]
  - PAIN [None]
  - PERIARTHRITIS [None]
  - PLEURAL EFFUSION [None]
  - PLEURAL FIBROSIS [None]
  - POLLAKIURIA [None]
  - RADIATION FIBROSIS [None]
  - RED BLOOD CELL COUNT DECREASED [None]
  - RED CELL DISTRIBUTION WIDTH INCREASED [None]
  - RIB FRACTURE [None]
  - SCIATICA [None]
  - SEASONAL ALLERGY [None]
  - STRESS [None]
  - THORACOTOMY [None]
  - VASCULAR CALCIFICATION [None]
  - VERTIGO [None]
  - VISION BLURRED [None]
  - WEIGHT ABNORMAL [None]
  - WHEEZING [None]
